FAERS Safety Report 6933225-1 (Version None)
Quarter: 2010Q3

REPORT INFORMATION
  Report Type: 
  Country: None (occurrence: None)
  Receive Date: 20100820
  Receipt Date: 20100810
  Transmission Date: 20110219
  Serious: Yes (Other)
  Sender: FDA-Public Use
  Company Number: US-RANBAXY-2010US-37051

PATIENT

DRUGS (2)
  1. ACETAMINOPHEN [Suspect]
     Indication: ARTHRITIS
     Dosage: 650 MG, 6 PILLS A DAY.
     Route: 065
     Dates: start: 20090701
  2. LYRICA [Suspect]
     Indication: PRODUCT USED FOR UNKNOWN INDICATION
     Dosage: UNK, UNK
     Route: 065

REACTIONS (1)
  - PLATELET COUNT DECREASED [None]
